FAERS Safety Report 5015938-4 (Version None)
Quarter: 2006Q2

REPORT INFORMATION
  Report Type: 
  Country: None (occurrence: None)
  Receive Date: 20060531
  Receipt Date: 20060531
  Transmission Date: 20061013
  Serious: Yes (Hospitalization)
  Sender: FDA-Public Use
  Company Number: None

PATIENT
  Age: 64 Year
  Sex: Female

DRUGS (9)
  1. TARCEVA [Suspect]
     Indication: BREAST CANCER METASTATIC
     Dosage: 100 MG PO QD
     Route: 048
     Dates: start: 20060223, end: 20060515
  2. RADOO1 - NOVARTIS [Suspect]
     Indication: BREAST CANCER METASTATIC
     Dosage: 2.5 MG PO QD
     Route: 048
     Dates: start: 20060223, end: 20060515
  3. HYZAAR [Concomitant]
  4. ZOCOR [Concomitant]
  5. LEXAPRO [Concomitant]
  6. ASPIRIN [Concomitant]
  7. ATIVAN [Concomitant]
  8. COMPAZINE [Concomitant]
  9. ZOFRAN [Concomitant]

REACTIONS (9)
  - BALANCE DISORDER [None]
  - CHROMATURIA [None]
  - COGNITIVE DISORDER [None]
  - DIARRHOEA [None]
  - FAECES DISCOLOURED [None]
  - JAUNDICE [None]
  - MALIGNANT NEOPLASM PROGRESSION [None]
  - METASTASES TO LIVER [None]
  - NAUSEA [None]
